FAERS Safety Report 19959226 (Version 1)
Quarter: 2021Q4

REPORT INFORMATION
  Report Type: Spontaneous
  Country: US (occurrence: US)
  Receive Date: 20211012
  Receipt Date: 20211012
  Transmission Date: 20220303
  Serious: Yes (Hospitalization)
  Sender: FDA-Public Use
  Company Number: None

PATIENT
  Age: 12 Year
  Sex: Female

DRUGS (2)
  1. EPOGEN [Suspect]
     Active Substance: ERYTHROPOIETIN
     Indication: Anaemia
     Dosage: ?          OTHER DOSE:1800 UNITS;OTHER FREQUENCY:MONDAY + THUR;
     Route: 058
     Dates: start: 20210227
  2. NUTROPIN AQ [Suspect]
     Active Substance: SOMATROPIN
     Indication: End stage renal disease
     Route: 058
     Dates: start: 20210515

REACTIONS (1)
  - Hospice care [None]

NARRATIVE: CASE EVENT DATE: 20211011
